FAERS Safety Report 6993083-6 (Version None)
Quarter: 2010Q3

REPORT INFORMATION
  Report Type: 
  Country: None (occurrence: None)
  Receive Date: 20100917
  Receipt Date: 20100210
  Transmission Date: 20110219
  Serious: Yes (Other)
  Sender: FDA-Public Use
  Company Number: US-ASTRAZENECA-2010SE05968

PATIENT
  Age: 13445 Day
  Sex: Male
  Weight: 81.6 kg

DRUGS (11)
  1. SEROQUEL XR [Suspect]
     Indication: INSOMNIA
     Route: 048
  2. SEROQUEL XR [Suspect]
     Indication: RESTLESSNESS
     Route: 048
  3. SEROQUEL XR [Suspect]
     Indication: SCHIZOPHRENIA
     Route: 048
  4. SEROQUEL XR [Suspect]
     Indication: BIPOLAR DISORDER
     Route: 048
  5. SEROQUEL XR [Suspect]
     Route: 048
     Dates: start: 20091130
  6. SEROQUEL XR [Suspect]
     Route: 048
     Dates: start: 20091130
  7. SEROQUEL XR [Suspect]
     Route: 048
     Dates: start: 20091130
  8. SEROQUEL XR [Suspect]
     Route: 048
     Dates: start: 20091130
  9. TEGRETOL [Concomitant]
     Indication: CONVULSION
     Route: 048
  10. DIAZEPAM [Concomitant]
     Indication: CONVULSION
     Route: 048
  11. KLONOPIN [Concomitant]
     Indication: CONVULSION
     Route: 048

REACTIONS (5)
  - CONVULSION [None]
  - DRUG INEFFECTIVE [None]
  - FEELING ABNORMAL [None]
  - INSOMNIA [None]
  - SUICIDAL IDEATION [None]
